FAERS Safety Report 4392324-1 (Version None)
Quarter: 2004Q3

REPORT INFORMATION
  Report Type: 
  Country: None (occurrence: None)
  Receive Date: 20040702
  Receipt Date: 20040304
  Transmission Date: 20050211
  Serious: Yes (Other)
  Sender: FDA-Public Use
  Company Number: 2004UW04040

PATIENT
  Sex: Female
  Weight: 58.0604 kg

DRUGS (2)
  1. CRESTOR [Suspect]
     Indication: LOW DENSITY LIPOPROTEIN INCREASED
     Dosage: 10 MG DAILY PO
     Route: 048
     Dates: start: 20031201
  2. HORMONE REPLACEMENT THERAPY [Concomitant]

REACTIONS (1)
  - WEIGHT INCREASED [None]
